FAERS Safety Report 18094666 (Version 2)
Quarter: 2020Q3

REPORT INFORMATION
  Report Type: Report from Study
  Country: None (occurrence: US)
  Receive Date: 20200731
  Receipt Date: 20200827
  Transmission Date: 20201103
  Serious: Yes (Other)
  Sender: FDA-Public Use
  Company Number: US-ABBVIE-20K-163-3284411-00

PATIENT
  Age: 47 Year
  Sex: Female
  Weight: 63.56 kg

DRUGS (3)
  1. XARELTO [Concomitant]
     Active Substance: RIVAROXABAN
     Indication: FACTOR V LEIDEN MUTATION
  2. HUMIRA [Suspect]
     Active Substance: ADALIMUMAB
     Indication: ANKYLOSING SPONDYLITIS
     Route: 058
     Dates: start: 20190705, end: 202007
  3. HUMIRA [Suspect]
     Active Substance: ADALIMUMAB
     Route: 058
     Dates: start: 202007

REACTIONS (23)
  - Limb crushing injury [Recovered/Resolved]
  - Dysstasia [Not Recovered/Not Resolved]
  - Pain [Not Recovered/Not Resolved]
  - Back pain [Not Recovered/Not Resolved]
  - Feeling hot [Unknown]
  - Nodule [Recovered/Resolved]
  - Injection site bruising [Unknown]
  - Arthralgia [Not Recovered/Not Resolved]
  - Upper limb fracture [Recovered/Resolved]
  - Fatigue [Not Recovered/Not Resolved]
  - Injection site erythema [Recovered/Resolved]
  - Loss of personal independence in daily activities [Not Recovered/Not Resolved]
  - Pain in extremity [Unknown]
  - Gait disturbance [Not Recovered/Not Resolved]
  - Skin hypertrophy [Unknown]
  - Skin exfoliation [Recovered/Resolved]
  - Injection site pain [Recovered/Resolved]
  - Joint stiffness [Recovering/Resolving]
  - Musculoskeletal stiffness [Recovering/Resolving]
  - Joint warmth [Unknown]
  - Fall [Recovered/Resolved]
  - Skin discolouration [Recovered/Resolved]
  - Neck pain [Not Recovered/Not Resolved]

NARRATIVE: CASE EVENT DATE: 2020
